FAERS Safety Report 4452308-1 (Version None)
Quarter: 2004Q3

REPORT INFORMATION
  Report Type: 
  Country: None (occurrence: None)
  Receive Date: 20040917
  Receipt Date: 20040908
  Transmission Date: 20050211
  Serious: Yes (Life-Threatening, Hospitalization)
  Sender: FDA-Public Use
  Company Number: BR-ROCHE-380075

PATIENT
  Age: 44 Year
  Sex: Female

DRUGS (2)
  1. RIVOTRIL [Suspect]
     Indication: EPILEPSY
     Route: 048
     Dates: start: 20040715, end: 20040715
  2. RIVOTRIL [Suspect]
     Route: 048

REACTIONS (4)
  - BLOOD PRESSURE FLUCTUATION [None]
  - COMA [None]
  - HEART RATE ABNORMAL [None]
  - NERVOUS SYSTEM DISORDER [None]
